FAERS Safety Report 9205095 (Version 1)
Quarter: 2013Q2

REPORT INFORMATION
  Report Type: Report from Study
  Country: US (occurrence: US)
  Receive Date: 20130402
  Receipt Date: 20130402
  Transmission Date: 20140414
  Serious: Yes (Hospitalization)
  Sender: FDA-Public Use
  Company Number: US-ACTELION-A-US2007-15370

PATIENT
  Age: 53 Year
  Sex: Female

DRUGS (3)
  1. TRACLEER [Suspect]
     Indication: PULMONARY ARTERIAL HYPERTENSION
     Route: 048
     Dates: start: 20070101
  2. DIURETICS [Concomitant]
  3. COUMADIN [Concomitant]

REACTIONS (17)
  - Heart rate decreased [Unknown]
  - Respiratory tract congestion [Unknown]
  - Syncope [Unknown]
  - Hypotension [Unknown]
  - Dehydration [Unknown]
  - Hepatic enzyme increased [Unknown]
  - Hyponatraemia [Unknown]
  - Hepatitis C [Unknown]
  - Pneumonia [Unknown]
  - Muscle spasms [Unknown]
  - Oedema peripheral [Unknown]
  - Nausea [Unknown]
  - Musculoskeletal stiffness [Unknown]
  - Pain [Unknown]
  - Fluid retention [Unknown]
  - Asthenia [Unknown]
  - Fatigue [Unknown]
